FAERS Safety Report 4701245-3 (Version None)
Quarter: 2005Q2

REPORT INFORMATION
  Report Type: 
  Country: None (occurrence: None)
  Receive Date: 20050628
  Receipt Date: 20050622
  Transmission Date: 20051028
  Serious: Yes (Disabling)
  Sender: FDA-Public Use
  Company Number: US-MERCK-0506USA03262

PATIENT
  Age: 70 Year
  Sex: Male

DRUGS (9)
  1. ZOCOR [Suspect]
     Indication: HYPERLIPIDAEMIA
     Route: 048
     Dates: start: 19970601, end: 20050209
  2. LASIX [Concomitant]
     Route: 065
  3. ATENOLOL [Concomitant]
     Route: 065
  4. IMDUR [Concomitant]
     Route: 065
  5. PRILOSEC [Concomitant]
     Route: 065
  6. ASPIRIN [Concomitant]
     Route: 065
  7. NAPROXEN [Concomitant]
     Route: 065
  8. CALTRATE [Concomitant]
     Route: 065
  9. MULTIVITAMIN [Concomitant]
     Route: 065

REACTIONS (3)
  - BACK PAIN [None]
  - DIFFICULTY IN WALKING [None]
  - MUSCULOSKELETAL DISORDER [None]
